FAERS Safety Report 25875411 (Version 1)
Quarter: 2025Q4

REPORT INFORMATION
  Report Type: Spontaneous
  Country: US (occurrence: US)
  Receive Date: 20251003
  Receipt Date: 20251003
  Transmission Date: 20260117
  Serious: Yes (Other)
  Sender: SOMERSET THERAPEUTICS, LLC
  Company Number: US-MIT-25-75-US-2025-SOM-LIT-00041

PATIENT
  Age: 45 Year
  Sex: Male

DRUGS (5)
  1. DEXAMETHASONE SODIUM PHOSPHATE [Suspect]
     Active Substance: DEXAMETHASONE SODIUM PHOSPHATE
     Indication: Blastic plasmacytoid dendritic cell neoplasia
     Dosage: FOUR CYCLES
     Route: 065
  2. CYCLOPHOSPHAMIDE [Concomitant]
     Active Substance: CYCLOPHOSPHAMIDE
     Dosage: FOUR CYCLES
     Route: 065
  3. VINCRISTINE [Concomitant]
     Active Substance: VINCRISTINE
     Dosage: FOUR CYCLES
     Route: 065
  4. DOXORUBICIN [Concomitant]
     Active Substance: DOXORUBICIN
     Dosage: FOUR CYCLES
     Route: 065
  5. TAGRAXOFUSP [Concomitant]
     Active Substance: TAGRAXOFUSP
     Dosage: TWO CYCLES
     Route: 065

REACTIONS (3)
  - Substance-induced psychotic disorder [Recovered/Resolved]
  - Product use in unapproved indication [Unknown]
  - Stem cell transplant [None]
